FAERS Safety Report 4877000-0 (Version None)
Quarter: 2005Q4

REPORT INFORMATION
  Report Type: 
  Country: None (occurrence: None)
  Receive Date: 20051206
  Receipt Date: 20050914
  Transmission Date: 20060501
  Serious: No
  Sender: FDA-Public Use
  Company Number: USA0509108100

PATIENT
  Age: 45 Year
  Sex: Female

DRUGS (6)
  1. CYMBALTA [Suspect]
     Indication: FIBROMYALGIA
     Dosage: 30 MG DAY
     Dates: start: 20050801
  2. BLOOD PRESSURE MED [Concomitant]
  3. DIURETIC [Concomitant]
  4. HORMONE [Concomitant]
  5. HYDROCODONE BITARTRATE [Concomitant]
  6. CORTISONE ACETATE TAB [Concomitant]

REACTIONS (2)
  - DIPLOPIA [None]
  - MIGRAINE [None]
